FAERS Safety Report 4286378-0 (Version None)
Quarter: 2004Q1

REPORT INFORMATION
  Report Type: 
  Country: None (occurrence: None)
  Receive Date: 20040205
  Receipt Date: 20040126
  Transmission Date: 20041129
  Serious: Yes (Hospitalization)
  Sender: FDA-Public Use
  Company Number: WAES 0401GBR00210

PATIENT
  Sex: Male

DRUGS (5)
  1. ACETAMINOPHEN [Concomitant]
  2. FOSAMAX [Suspect]
     Indication: OSTEOPOROSIS
     Route: 048
     Dates: start: 20030101, end: 20040101
  3. BETAMETHASONE VALERATE [Concomitant]
  4. CALCIUM CARBONATE [Concomitant]
  5. LACTULOSE [Concomitant]

REACTIONS (1)
  - GASTROINTESTINAL CARCINOMA [None]
